FAERS Safety Report 9333854 (Version 3)
Quarter: 2013Q2

REPORT INFORMATION
  Report Type: Report from Study
  Country: SG (occurrence: SG)
  Receive Date: 20130606
  Receipt Date: 20130626
  Transmission Date: 20140414
  Serious: Yes (Hospitalization, Other)
  Sender: FDA-Public Use
  Company Number: SG-INCYTE CORPORATION-2013IN001157

PATIENT
  Age: 65 Year
  Sex: Male
  Weight: 52 kg

DRUGS (9)
  1. INC424 [Suspect]
     Indication: MYELOFIBROSIS
     Dosage: 10 MG, BID
     Route: 048
     Dates: start: 20130509, end: 20130516
  2. INC424 [Suspect]
     Dosage: 10 MG, BID
     Route: 048
     Dates: start: 20130517, end: 20130522
  3. INC424 [Suspect]
     Dosage: 5 MG, BID
     Route: 048
     Dates: start: 20130531
  4. PI3K INHIBITOR [Suspect]
     Indication: MYELOFIBROSIS
     Dosage: 60 MG, QD
     Route: 048
     Dates: start: 20130510, end: 20130515
  5. PI3K INHIBITOR [Suspect]
     Dosage: 60 MG, QD
     Route: 048
     Dates: start: 20130517, end: 20130518
  6. PI3K INHIBITOR [Suspect]
     Dosage: 60 MG, BID
     Route: 048
     Dates: start: 20130519, end: 20130522
  7. PI3K INHIBITOR [Suspect]
     Dosage: 40 MG, QD
     Route: 048
     Dates: start: 20130531
  8. SENNOSIDE [Concomitant]
     Dosage: UNK
     Dates: start: 20130509
  9. HEPARINOID [Concomitant]
     Dosage: UNK
     Dates: start: 20130513

REACTIONS (2)
  - Muscular weakness [Recovered/Resolved]
  - Hyperglycaemia [Recovered/Resolved]
